FAERS Safety Report 23430708 (Version 1)
Quarter: 2024Q1

REPORT INFORMATION
  Report Type: Spontaneous
  Country: US (occurrence: US)
  Receive Date: 20240123
  Receipt Date: 20240123
  Transmission Date: 20240409
  Serious: No
  Sender: FDA-Public Use
  Company Number: US-ALK-ABELLO A/S-2023AA004952

PATIENT

DRUGS (1)
  1. BLATTELLA GERMANICA\PERIPLANETA AMERICANA [Suspect]
     Active Substance: BLATTELLA GERMANICA\PERIPLANETA AMERICANA
     Indication: Skin test

REACTIONS (1)
  - Accidental exposure to product [Recovered/Resolved]
